FAERS Safety Report 11103164 (Version 1)
Quarter: 2015Q2

REPORT INFORMATION
  Report Type: Spontaneous
  Country: US (occurrence: None)
  Receive Date: 20150508
  Receipt Date: 20150508
  Transmission Date: 20150821
  Serious: Yes (Hospitalization)
  Sender: FDA-Public Use
  Company Number: None

PATIENT
  Age: 74 Year
  Sex: Male
  Weight: 46 kg

DRUGS (1)
  1. BENDAMUSTINE HYDROCHLORIDE [Suspect]
     Active Substance: BENDAMUSTINE HYDROCHLORIDE
     Dates: start: 20150403

REACTIONS (13)
  - QRS axis abnormal [None]
  - Lung disorder [None]
  - Atrial fibrillation [None]
  - Blood pressure diastolic decreased [None]
  - Emphysema [None]
  - Haemoglobin decreased [None]
  - Cardiomegaly [None]
  - Pneumonia [None]
  - Drug dose omission [None]
  - Left ventricular hypertrophy [None]
  - Lymphadenopathy [None]
  - Lymphadenopathy mediastinal [None]
  - Pulmonary mass [None]

NARRATIVE: CASE EVENT DATE: 20150330
